FAERS Safety Report 13530474 (Version 1)
Quarter: 2017Q2

REPORT INFORMATION
  Report Type: Report from Study
  Country: None (occurrence: US)
  Receive Date: 20170510
  Receipt Date: 20170510
  Transmission Date: 20170830
  Serious: Yes (Hospitalization, Other)
  Sender: FDA-Public Use
  Company Number: US-ABBVIE-17K-163-1912127-00

PATIENT
  Age: 60 Year
  Sex: Male

DRUGS (1)
  1. HUMIRA [Suspect]
     Active Substance: ADALIMUMAB
     Indication: PSORIASIS
     Route: 058
     Dates: start: 20161108, end: 20170120

REACTIONS (4)
  - Coccidioidomycosis [Not Recovered/Not Resolved]
  - Adrenomegaly [Not Recovered/Not Resolved]
  - Blood potassium decreased [Recovered/Resolved with Sequelae]
  - Decreased appetite [Recovering/Resolving]

NARRATIVE: CASE EVENT DATE: 201611
